FAERS Safety Report 4808563-9 (Version None)
Quarter: 2005Q4

REPORT INFORMATION
  Report Type: 
  Country: None (occurrence: None)
  Receive Date: 20051025
  Receipt Date: 20051019
  Transmission Date: 20060501
  Serious: Yes (Other)
  Sender: FDA-Public Use
  Company Number: US-GLAXOSMITHKLINE-A0579077A

PATIENT
  Age: 35 Year
  Sex: Female

DRUGS (5)
  1. LAMICTAL [Suspect]
     Indication: BIPOLAR DISORDER
     Dosage: 25MG PER DAY
     Dates: start: 20050210
  2. KLONOPIN [Concomitant]
     Dosage: 5MG PER DAY
  3. PROZAC [Concomitant]
     Dosage: 20MG PER DAY
  4. ZYPREXA [Concomitant]
     Dosage: 10MG PER DAY
  5. VICODIN [Concomitant]
     Dosage: 1000MG PER DAY

REACTIONS (2)
  - NORMAL DELIVERY [None]
  - PLACENTA PRAEVIA [None]
